FAERS Safety Report 5745922-4 (Version None)
Quarter: 2008Q2

REPORT INFORMATION
  Report Type: 
  Country: None (occurrence: None)
  Receive Date: 20080520
  Receipt Date: 20080509
  Transmission Date: 20081010
  Serious: Yes (Other)
  Sender: FDA-Public Use
  Company Number: 163-21880-08050663

PATIENT
  Age: 68 Year
  Sex: Male

DRUGS (1)
  1. REVLIMID [Suspect]
     Indication: MULTIPLE MYELOMA
     Dosage: DAILY FOR 21 DAYS, ORAL; 15 MG, 1 IN 1 D, ORAL; 20-25 MG, DAILY, ORAL
     Route: 048
     Dates: start: 20070801

REACTIONS (1)
  - MALIGNANT MELANOMA [None]
